FAERS Safety Report 8194668-4 (Version None)
Quarter: 2012Q1

REPORT INFORMATION
  Report Type: 
  Country: None (occurrence: None)
  Receive Date: 20120308
  Receipt Date: 20120228
  Transmission Date: 20120608
  Serious: Yes (Hospitalization)
  Sender: FDA-Public Use
  Company Number: BR-ASTRAZENECA-2012SE14353

PATIENT
  Age: 69 Year
  Sex: Female

DRUGS (2)
  1. LABIRIN [Concomitant]
     Route: 048
     Dates: start: 20080101
  2. ATACAND [Suspect]
     Indication: HYPERTENSION
     Route: 048
     Dates: start: 20090101, end: 20120228

REACTIONS (1)
  - LUNG INFECTION [None]
